FAERS Safety Report 6164311-4 (Version None)
Quarter: 2009Q2

REPORT INFORMATION
  Report Type: 
  Country: None (occurrence: None)
  Receive Date: 20090422
  Receipt Date: 20090410
  Transmission Date: 20091009
  Serious: Yes (Hospitalization, Other)
  Sender: FDA-Public Use
  Company Number: US-PFIZER INC-2009171405

PATIENT
  Sex: Male

DRUGS (6)
  1. CHANTIX [Suspect]
     Dosage: UNK
     Route: 048
     Dates: start: 20090108, end: 20090101
  2. METHADONE HYDROCHLORIDE [Suspect]
     Indication: PAIN
     Dates: start: 20090101
  3. METHADONE HYDROCHLORIDE [Suspect]
     Indication: BACK PAIN
  4. OXYCODONE HCL [Concomitant]
     Indication: INTERVERTEBRAL DISC PROTRUSION
     Dosage: 5 MG, AS NEEDED
  5. MOTRIN [Concomitant]
     Indication: INTERVERTEBRAL DISC PROTRUSION
     Dosage: 800 MG, UNK
  6. IBUPROFEN [Concomitant]
     Dosage: UNK
     Dates: start: 20090101

REACTIONS (5)
  - LOSS OF CONSCIOUSNESS [None]
  - NAUSEA [None]
  - RHABDOMYOLYSIS [None]
  - UNEVALUABLE EVENT [None]
  - VOMITING [None]
